FAERS Safety Report 7074476-8 (Version None)
Quarter: 2010Q4

REPORT INFORMATION
  Report Type: 
  Country: None (occurrence: None)
  Receive Date: 20101021
  Receipt Date: 20101006
  Transmission Date: 20110411
  Serious: Yes (Other)
  Sender: FDA-Public Use
  Company Number: 1000016652

PATIENT
  Age: 30 Year
  Sex: Male

DRUGS (1)
  1. BENZONATATE [Suspect]
     Dosage: (600 MG, ONCE)

REACTIONS (2)
  - ACCIDENTAL EXPOSURE [None]
  - CONVULSION [None]
